FAERS Safety Report 21773331 (Version 1)
Quarter: 2022Q4

REPORT INFORMATION
  Report Type: Report from Study
  Country: CA (occurrence: None)
  Receive Date: 20221223
  Receipt Date: 20221223
  Transmission Date: 20230112
  Serious: Yes (Hospitalization, Other)
  Sender: FDA-Public Use
  Company Number: 2022A414066

PATIENT
  Sex: Male

DRUGS (1)
  1. FASENRA [Suspect]
     Active Substance: BENRALIZUMAB
     Indication: Asthma
     Route: 058
     Dates: start: 20211118

REACTIONS (4)
  - Dyspnoea [Recovering/Resolving]
  - Syncope [Recovering/Resolving]
  - Muscle injury [Unknown]
  - Drug ineffective [Unknown]
